FAERS Safety Report 8122067-X (Version None)
Quarter: 2012Q1

REPORT INFORMATION
  Report Type: 
  Country: None (occurrence: None)
  Receive Date: 20120208
  Receipt Date: 20120203
  Transmission Date: 20120608
  Serious: Yes (Death, Hospitalization)
  Sender: FDA-Public Use
  Company Number: DE-GENZYME-CLOF-1001841

PATIENT
  Age: 78 Year
  Sex: Male
  Weight: 83.5 kg

DRUGS (18)
  1. LASIX [Concomitant]
     Indication: HYPERTENSION
     Dosage: UNK
     Route: 042
     Dates: start: 20110908, end: 20110909
  2. EVOLTRA [Suspect]
     Indication: ACUTE MYELOID LEUKAEMIA
     Dosage: 39.4 MG, QD X 5 DAYS
     Route: 040
     Dates: start: 20110915, end: 20110919
  3. CYTARABINE [Suspect]
     Indication: ACUTE MYELOID LEUKAEMIA
     Dosage: 39.4 MG, QD X 14 DAYS
     Route: 058
     Dates: start: 20110915, end: 20110928
  4. TORSEMIDE [Concomitant]
     Indication: OEDEMA
  5. ZIENAM [Concomitant]
     Indication: ANTIBIOTIC THERAPY
     Dosage: UNK
     Route: 042
     Dates: start: 20110915, end: 20111001
  6. ZIENAM [Concomitant]
     Indication: INFECTION
  7. METRONIDAZOLE [Concomitant]
     Indication: INFECTION
     Dosage: UNK
     Route: 048
     Dates: start: 20110921, end: 20111001
  8. CIPROFLOXACIN [Concomitant]
     Indication: INFECTION
     Dosage: UNK
     Route: 048
     Dates: start: 20110908, end: 20110915
  9. FUNGIZONE [Concomitant]
     Indication: ANTIFUNGAL PROPHYLAXIS
     Dosage: UNK
     Route: 042
     Dates: start: 20110915, end: 20110928
  10. AMBISOME [Concomitant]
     Indication: ANTIBIOTIC THERAPY
     Dosage: UNK
     Route: 042
     Dates: start: 20110928, end: 20111006
  11. LASIX [Concomitant]
     Dosage: UNK
     Route: 042
     Dates: start: 20111011, end: 20111021
  12. LASIX [Concomitant]
     Dosage: UNK
     Route: 042
     Dates: start: 20111025, end: 20111028
  13. CIPROFLOXACIN [Concomitant]
     Indication: ANTIBIOTIC THERAPY
  14. MELPERONE [Concomitant]
     Indication: PSYCHOTIC DISORDER
     Dosage: UNK
     Route: 048
     Dates: start: 20111012, end: 20111012
  15. TORSEMIDE [Concomitant]
     Indication: CARDIAC FAILURE
     Dosage: UNK
     Route: 048
     Dates: end: 20110908
  16. FLUCONAZOLE [Concomitant]
     Indication: FUNGAL INFECTION
     Dosage: UNK
     Route: 048
     Dates: start: 20110908, end: 20110914
  17. FLUCONAZOLE [Concomitant]
  18. LASIX [Concomitant]
     Dosage: UNK
     Route: 042
     Dates: start: 20110921, end: 20111008

REACTIONS (4)
  - RESPIRATORY FAILURE [None]
  - NEPHROPATHY TOXIC [None]
  - SEPSIS [None]
  - DISORIENTATION [None]
